FAERS Safety Report 18276286 (Version 8)
Quarter: 2021Q1

REPORT INFORMATION
  Report Type: Report from Study
  Country: US (occurrence: US)
  Receive Date: 20200917
  Receipt Date: 20210114
  Transmission Date: 20210419
  Serious: No
  Sender: FDA-Public Use
  Company Number: US-B.I. PHARMACEUTICALS,INC./RIDGEFIELD-2020-BI-047128

PATIENT
  Age: 79 Year
  Sex: Male

DRUGS (2)
  1. OFEV [Suspect]
     Active Substance: NINTEDANIB
     Indication: IDIOPATHIC PULMONARY FIBROSIS
     Dosage: OFEV DOSE 200MG DAILY
     Route: 048
     Dates: start: 20200810
  2. YUHAN METFORMIN XR [Concomitant]
     Indication: DIABETES MELLITUS
     Dosage: 500MG ONCE A DAY

REACTIONS (8)
  - Abdominal pain upper [Recovered/Resolved]
  - Pneumonia [Recovering/Resolving]
  - Abdominal discomfort [Unknown]
  - Restless legs syndrome [Unknown]
  - Pleural effusion [Recovered/Resolved]
  - Nausea [Recovering/Resolving]
  - Dyspnoea [Recovered/Resolved]
  - Thrombosis [Recovering/Resolving]

NARRATIVE: CASE EVENT DATE: 2020
